FAERS Safety Report 5386432-6 (Version None)
Quarter: 2007Q3

REPORT INFORMATION
  Report Type: 
  Country: None (occurrence: None)
  Receive Date: 20070713
  Receipt Date: 20070703
  Transmission Date: 20080115
  Serious: Yes (Other)
  Sender: FDA-Public Use
  Company Number: US-JNJFOC-20070701409

PATIENT
  Sex: Female
  Weight: 70.31 kg

DRUGS (8)
  1. FENTANYL TRANSDERMAL SYSTEM [Suspect]
     Route: 062
  2. FENTANYL TRANSDERMAL SYSTEM [Suspect]
     Indication: PAIN
     Route: 062
  3. LEVOXYL [Concomitant]
     Route: 048
  4. LEVOXYL [Concomitant]
     Indication: THYROID DISORDER
     Route: 048
  5. CALCIUM SUPPLEMENT [Concomitant]
     Indication: VITAMIN SUPPLEMENTATION
     Route: 048
  6. VITAMIN E [Concomitant]
     Indication: NUTRITIONAL SUPPORT
     Route: 048
  7. PREMPRO [Concomitant]
     Indication: HOT FLUSH
     Dosage: 0.3MG/1.5MG
     Route: 048
  8. PROTONIX [Concomitant]
     Indication: HIATUS HERNIA
     Route: 048

REACTIONS (1)
  - KERATOSIS OBTURANS [None]
